FAERS Safety Report 7107780 (Version 7)
Quarter: 2012Q4

REPORT INFORMATION
  Report Type: Spontaneous
  Country: GR (occurrence: None)
  Receive Date: 20090826
  Receipt Date: 20120829
  Transmission Date: 20130627
  Serious: Yes (Death, Hospitalization)
  Sender: FDA-Public Use
  Company Number: 2009002433

PATIENT
  Age: 61 Year
  Sex: Male
  Weight: 55 kg

DRUGS (6)
  1. ERLOTINIB HYDROCHLORIDE [Suspect]
     Indication: NON-SMALL CELL LUNG CANCER
     Dosage: 150 MG, UID/OD, ORAL
     Route: 048
     Dates: start: 20090414, end: 20090616
  2. FIGITUMUMAB [Suspect]
     Indication: NON-SMALL CELL LUNG CANCER
     Dosage: 1100 MG, CYCLIC, IV NOS
     Route: 042
     Dates: start: 20090414, end: 20090528
  3. CARBOPLATIN [Concomitant]
  4. GEMZAR [Concomitant]
  5. ISOPTIN [Concomitant]
  6. SPIRIVA [Concomitant]

REACTIONS (3)
  - TRACHEO-OESOPHAGEAL FISTULA [None]
  - NON-SMALL CELL LUNG CANCER [None]
  - Neoplasm progression [None]
